FAERS Safety Report 16794097 (Version 18)
Quarter: 2020Q1

REPORT INFORMATION
  Report Type: Report from Study
  Country: IE (occurrence: IE)
  Receive Date: 20190911
  Receipt Date: 20200123
  Transmission Date: 20200409
  Serious: No
  Sender: FDA-Public Use
  Company Number: IE-BEH-2016074630

PATIENT
  Age: 57 Year
  Sex: Male
  Weight: 76 kg

DRUGS (28)
  1. ZEMAIRA [Suspect]
     Active Substance: .ALPHA.1-PROTEINASE INHIBITOR HUMAN
     Dosage: 9120 MILLIGRAM, QW
     Route: 042
     Dates: start: 2012
  2. ZEMAIRA [Suspect]
     Active Substance: .ALPHA.1-PROTEINASE INHIBITOR HUMAN
     Dosage: DOUBLE DOSE, TOT
     Route: 042
     Dates: start: 20191014, end: 20191014
  3. ZEMAIRA [Suspect]
     Active Substance: .ALPHA.1-PROTEINASE INHIBITOR HUMAN
     Dosage: 9120 MILLIGRAMS (DOUBLE DOSE), TOT
     Route: 042
     Dates: start: 20191216, end: 20191216
  4. ZEMAIRA [Suspect]
     Active Substance: .ALPHA.1-PROTEINASE INHIBITOR HUMAN
     Dosage: DOUBLE DOSE, TOT
     Route: 042
     Dates: start: 20191028, end: 20191028
  5. ZEMAIRA [Suspect]
     Active Substance: .ALPHA.1-PROTEINASE INHIBITOR HUMAN
     Dosage: 9120 MILLIGRAM (182.4MLS), QW - DOUBLE DOSE
     Route: 042
     Dates: start: 20191104, end: 20191104
  6. ZEMAIRA [Suspect]
     Active Substance: .ALPHA.1-PROTEINASE INHIBITOR HUMAN
     Dosage: 9120 MG (DOUBLE DOSE)
     Route: 042
     Dates: start: 20200106, end: 20200106
  7. NACL [Concomitant]
     Active Substance: SODIUM CHLORIDE
     Dosage: 10 MILLILITER
     Route: 065
     Dates: start: 20191216
  8. ZEMAIRA [Suspect]
     Active Substance: .ALPHA.1-PROTEINASE INHIBITOR HUMAN
     Dosage: 120 MG/KG, QW
     Route: 042
     Dates: start: 20161012
  9. ZEMAIRA [Suspect]
     Active Substance: .ALPHA.1-PROTEINASE INHIBITOR HUMAN
     Dosage: DOUBLE DOSE, TOT
     Route: 042
     Dates: start: 20190923, end: 20190923
  10. ZEMAIRA [Suspect]
     Active Substance: .ALPHA.1-PROTEINASE INHIBITOR HUMAN
     Dosage: DOUBLE DOSE, TOT
     Route: 042
     Dates: start: 20191022, end: 20191022
  11. ZEMAIRA [Suspect]
     Active Substance: .ALPHA.1-PROTEINASE INHIBITOR HUMAN
     Dosage: 9120 MILLIGRAM, QW
     Route: 042
     Dates: start: 2012
  12. ZEMAIRA [Suspect]
     Active Substance: .ALPHA.1-PROTEINASE INHIBITOR HUMAN
     Dosage: 9120 MILLIGRAMS (DOUBLE DOSE), TOT
     Route: 042
     Dates: start: 20191230, end: 20191230
  13. ZEMAIRA [Suspect]
     Active Substance: .ALPHA.1-PROTEINASE INHIBITOR HUMAN
     Dosage: DOUBLE DOSE, TOT
     Route: 042
     Dates: start: 20190916, end: 20190916
  14. ZEMAIRA [Suspect]
     Active Substance: .ALPHA.1-PROTEINASE INHIBITOR HUMAN
     Dosage: DOUBLE DOSE, TOT
     Route: 042
     Dates: start: 20191007, end: 20191007
  15. ZEMAIRA [Suspect]
     Active Substance: .ALPHA.1-PROTEINASE INHIBITOR HUMAN
     Dosage: DOUBLE DOSE, TOT
     Route: 042
     Dates: start: 20191118, end: 20191118
  16. NACL [Concomitant]
     Active Substance: SODIUM CHLORIDE
     Dosage: 50 MILLILITER
     Route: 041
     Dates: start: 20191125
  17. ZEMAIRA [Suspect]
     Active Substance: .ALPHA.1-PROTEINASE INHIBITOR HUMAN
     Dosage: 9120 MILLIGRAMS (DOUBLE DOSE), TOT
     Route: 042
     Dates: start: 20191209, end: 20191209
  18. ZEMAIRA [Suspect]
     Active Substance: .ALPHA.1-PROTEINASE INHIBITOR HUMAN
     Dosage: 9120 MILLIGRAMS (DOUBLE DOSE), TOT
     Route: 042
     Dates: start: 20191223, end: 20191223
  19. SOLVENT [Concomitant]
     Dosage: UNK
     Route: 065
     Dates: start: 20191125
  20. SOLVENT [Concomitant]
     Dosage: UNK
     Route: 065
     Dates: start: 20191216
  21. ZEMAIRA [Suspect]
     Active Substance: .ALPHA.1-PROTEINASE INHIBITOR HUMAN
     Dosage: DOUBLE DOSE, TOT
     Route: 042
     Dates: start: 20190930, end: 20190930
  22. ZEMAIRA [Suspect]
     Active Substance: .ALPHA.1-PROTEINASE INHIBITOR HUMAN
     Dosage: 9120 MILLIGRAM / 182.4 MLS
     Route: 042
     Dates: start: 20191125
  23. ZEMAIRA [Suspect]
     Active Substance: .ALPHA.1-PROTEINASE INHIBITOR HUMAN
     Dosage: 9120 MG
     Route: 042
     Dates: start: 201610
  24. ZEMAIRA [Suspect]
     Active Substance: .ALPHA.1-PROTEINASE INHIBITOR HUMAN
     Dosage: 9120 MGS, DOUBLE DOSE
     Route: 042
     Dates: start: 20200113, end: 20200113
  25. ZEMAIRA [Suspect]
     Active Substance: .ALPHA.1-PROTEINASE INHIBITOR HUMAN
     Indication: ALPHA-1 ANTI-TRYPSIN DEFICIENCY
     Dosage: 120 MG, UNK
     Route: 042
  26. ZEMAIRA [Suspect]
     Active Substance: .ALPHA.1-PROTEINASE INHIBITOR HUMAN
     Dosage: 120 MILLIGRAM/KILOGRAM, TOT
     Route: 042
     Dates: start: 20190909, end: 20190909
  27. ZEMAIRA [Suspect]
     Active Substance: .ALPHA.1-PROTEINASE INHIBITOR HUMAN
     Dosage: 9120 MILLIGRAM, TOT (DOUBLE DOSE)
     Route: 042
     Dates: start: 20191202, end: 20191202
  28. NACL [Concomitant]
     Active Substance: SODIUM CHLORIDE
     Dosage: 10 MILLILITER
     Route: 065
     Dates: start: 20191125

REACTIONS (4)
  - Incorrect dose administered [Unknown]
  - Prescribed overdose [Unknown]
  - Off label use [Unknown]
  - No adverse event [Unknown]
